FAERS Safety Report 9645438 (Version 3)
Quarter: 2014Q2

REPORT INFORMATION
  Report Type: Spontaneous
  Country: DK (occurrence: CA)
  Receive Date: 20131025
  Receipt Date: 20140401
  Transmission Date: 20141212
  Serious: Yes (Hospitalization, Other)
  Sender: FDA-Public Use
  Company Number: CA-FRI-1000050331

PATIENT
  Age: 53 Year
  Sex: Female

DRUGS (5)
  1. ESCITALOPRAM [Suspect]
     Indication: MAJOR DEPRESSION
     Dosage: 20 MG
     Route: 048
  2. ZELDOX [Suspect]
     Indication: SCHIZOPHRENIA
     Dosage: 40 MG
     Route: 048
  3. ZELDOX [Suspect]
     Dosage: 160 MG
     Route: 048
  4. CLONAZEPAM [Concomitant]
     Indication: ANXIETY
     Dosage: 1 MG
     Route: 048
     Dates: start: 201010
  5. COGENTIN [Concomitant]
     Dosage: DAILY DOSE NOT REPORTED.

REACTIONS (2)
  - Extrapyramidal disorder [Recovered/Resolved]
  - Large intestine operation [Unknown]
